FAERS Safety Report 18985919 (Version 1)
Quarter: 2021Q1

REPORT INFORMATION
  Report Type: Spontaneous
  Country: US (occurrence: US)
  Receive Date: 20210308
  Receipt Date: 20210308
  Transmission Date: 20210420
  Serious: No
  Sender: FDA-Public Use
  Company Number: None

PATIENT
  Age: 34 Year
  Sex: Female

DRUGS (8)
  1. OCREVUS 300/10ML INJ [Concomitant]
  2. VITAMIN E 400IU [Concomitant]
  3. VITAMIN D3 5000 IU [Concomitant]
  4. DEPO?PROVERA 150MG/ML IM SYRINGE [Concomitant]
  5. AUSTEDO [Suspect]
     Active Substance: DEUTETRABENAZINE
     Indication: DYSKINESIA
     Route: 048
     Dates: start: 20190604, end: 20210308
  6. BACLOFEN 10MG [Concomitant]
     Active Substance: BACLOFEN
  7. FISH OIL 10000MG [Concomitant]
  8. KLONOPIN [Concomitant]
     Active Substance: CLONAZEPAM

REACTIONS (1)
  - Therapy non-responder [None]

NARRATIVE: CASE EVENT DATE: 20210308
